FAERS Safety Report 23769603 (Version 3)
Quarter: 2024Q3

REPORT INFORMATION
  Report Type: Report from Study
  Country: MX (occurrence: MX)
  Receive Date: 20240422
  Receipt Date: 20240918
  Transmission Date: 20241017
  Serious: No
  Sender: NOVARTIS
  Company Number: MX-002147023-NVSC2024MX043863

PATIENT
  Age: 71 Year
  Sex: Male
  Weight: 56 kg

DRUGS (4)
  1. TASIGNA [Suspect]
     Active Substance: NILOTINIB
     Indication: Chronic myeloid leukaemia
     Dosage: 4 DOSAGE FORM, QD (4X200 MG)
     Route: 048
     Dates: start: 20230901, end: 202401
  2. TASIGNA [Suspect]
     Active Substance: NILOTINIB
     Dosage: 2 DOSAGE FORM, QD (2X200 MG)
     Route: 048
     Dates: start: 202401, end: 202402
  3. TASIGNA [Suspect]
     Active Substance: NILOTINIB
     Dosage: 2 DOSAGE FORM, QD (2X200 MG)
     Route: 048
     Dates: start: 202403, end: 202403
  4. TASIGNA [Suspect]
     Active Substance: NILOTINIB
     Dosage: 3 DOSAGE FORM, QD (3X200 MG)
     Route: 048
     Dates: start: 202403

REACTIONS (1)
  - Off label use [Not Recovered/Not Resolved]

NARRATIVE: CASE EVENT DATE: 20240101
